FAERS Safety Report 24629719 (Version 1)
Quarter: 2024Q4

REPORT INFORMATION
  Report Type: Spontaneous
  Country: CN (occurrence: CN)
  Receive Date: 20241118
  Receipt Date: 20241118
  Transmission Date: 20250115
  Serious: Yes (Hospitalization)
  Sender: Steriscience PTE
  Company Number: None

PATIENT
  Age: 52 Year
  Sex: Male

DRUGS (5)
  1. VANCOMYCIN [Suspect]
     Active Substance: VANCOMYCIN
     Indication: Brain abscess
     Dosage: 1 GRAM, BID, 1 G, IV, Q12H, RECEIVED INTERMITTENTLY OVER 6 WEEKS
     Route: 042
     Dates: start: 202301, end: 2023
  2. MEROPENEM [Suspect]
     Active Substance: MEROPENEM
     Indication: Brain abscess
     Dosage: 2 GRAM, Q8H, 2 G, IV, Q8H, RECEIVED INTERMITTENTLY OVER 6 WEEKS
     Route: 042
     Dates: start: 202301, end: 2023
  3. CEFTRIAXONE [Suspect]
     Active Substance: CEFTRIAXONE
     Indication: Antibiotic therapy
     Dosage: UNK
     Route: 065
     Dates: start: 202301
  4. VALPROATE SODIUM [Concomitant]
     Active Substance: VALPROATE SODIUM
     Indication: Product used for unknown indication
     Dosage: UNK
     Route: 065
     Dates: start: 202301
  5. MANNITOL [Concomitant]
     Active Substance: MANNITOL
     Indication: Product used for unknown indication
     Dosage: UNK
     Route: 065
     Dates: start: 202301

REACTIONS (3)
  - Leukopenia [None]
  - Neutropenia [None]
  - Agranulocytosis [None]

NARRATIVE: CASE EVENT DATE: 20230101
